FAERS Safety Report 10969160 (Version 2)
Quarter: 2015Q2

REPORT INFORMATION
  Report Type: Spontaneous
  Country: VN (occurrence: VN)
  Receive Date: 20150331
  Receipt Date: 20150413
  Transmission Date: 20150821
  Serious: Yes (Hospitalization)
  Sender: FDA-Public Use
  Company Number: PHHY2015VN017757

PATIENT
  Age: 75 Year
  Sex: Male

DRUGS (4)
  1. GLIVEC [Suspect]
     Active Substance: IMATINIB MESYLATE
     Indication: CHRONIC MYELOID LEUKAEMIA
     Dosage: 8 DF, QD
     Route: 048
     Dates: start: 20141128, end: 20141201
  2. GLIVEC [Suspect]
     Active Substance: IMATINIB MESYLATE
     Dosage: 4 DF (400 MG), QD
     Route: 048
     Dates: start: 20150304
  3. ZYLORIC [Concomitant]
     Active Substance: ALLOPURINOL
     Indication: CHRONIC MYELOID LEUKAEMIA
     Dosage: 0.3 G, UNK
     Route: 048
     Dates: start: 20141128, end: 20141205
  4. GLIVEC [Suspect]
     Active Substance: IMATINIB MESYLATE
     Dosage: 4 DF (400 MG), QD
     Route: 048
     Dates: start: 20141205, end: 20150224

REACTIONS (8)
  - Blister [Recovered/Resolved]
  - Malaise [Unknown]
  - Eczema infected [Unknown]
  - Erythema [Recovered/Resolved]
  - Oedema [Recovered/Resolved]
  - Rash [Recovered/Resolved]
  - Pruritus [Recovered/Resolved]
  - Pruritus [Recovered/Resolved]

NARRATIVE: CASE EVENT DATE: 20150212
